FAERS Safety Report 8421488-5 (Version None)
Quarter: 2012Q2

REPORT INFORMATION
  Report Type: 
  Country: None (occurrence: None)
  Receive Date: 20120323
  Receipt Date: 20111219
  Transmission Date: 20120825
  Serious: Yes (Hospitalization)
  Sender: FDA-Public Use
  Company Number: 163-21880-11122468

PATIENT
  Age: 77 Year
  Sex: Male

DRUGS (6)
  1. GLYBURIDE [Concomitant]
  2. DEXAMETHASONE [Concomitant]
  3. LISINOPRIL [Concomitant]
  4. LENALIDOMIDE [Suspect]
     Indication: MULTIPLE MYELOMA
     Dosage: 15 MG, QD X 21 DAYS, PO
     Route: 048
     Dates: start: 20110608
  5. HUMULIN (NOVOLIN 20/80) [Concomitant]
  6. ASPIRIN [Concomitant]

REACTIONS (1)
  - CHEST PAIN [None]
